FAERS Safety Report 14610259 (Version 3)
Quarter: 2018Q3

REPORT INFORMATION
  Report Type: Report from Study
  Country: ES (occurrence: ES)
  Receive Date: 20180307
  Receipt Date: 20180710
  Transmission Date: 20181010
  Serious: Yes (Other)
  Sender: FDA-Public Use
  Company Number: ES-PFIZER INC-2018092424

PATIENT
  Age: 67 Year
  Sex: Female
  Weight: 92 kg

DRUGS (4)
  1. ROCURONIUM [Concomitant]
     Active Substance: ROCURONIUM BROMIDE
     Indication: ANAESTHESIA
     Dosage: 0.054 MG/KG, 5 MG IN TOTAL (DILUTED IN PHYSIOLOGICAL SALINE FROM VIALS CONCENTRATION OF 10MG/ML)
     Route: 040
  2. BUPIVACAINE. [Concomitant]
     Active Substance: BUPIVACAINE
     Indication: NERVE BLOCK
     Dosage: 0.5 %, UNK
     Route: 065
  3. REMIFENTANIL [Interacting]
     Active Substance: REMIFENTANIL
     Indication: ANAESTHESIA
     Dosage: UNK
     Route: 042
  4. PROPOFOL. [Suspect]
     Active Substance: PROPOFOL
     Indication: ANAESTHESIA
     Dosage: UNK
     Route: 042

REACTIONS (2)
  - Bradypnoea [Recovered/Resolved]
  - Drug interaction [Recovered/Resolved]
